FAERS Safety Report 15752555 (Version 4)
Quarter: 2019Q2

REPORT INFORMATION
  Report Type: Spontaneous
  Country: RU (occurrence: RU)
  Receive Date: 20181221
  Receipt Date: 20190528
  Transmission Date: 20190711
  Serious: Yes (Death)
  Sender: FDA-Public Use
  Company Number: PHHY2018RU192429

PATIENT
  Age: 5 Year
  Sex: Male
  Weight: 16 kg

DRUGS (6)
  1. LENDACIN [Suspect]
     Active Substance: CEFTRIAXONE SODIUM
     Indication: BRONCHITIS CHRONIC
  2. ATROVENT [Concomitant]
     Active Substance: IPRATROPIUM BROMIDE
     Indication: PRODUCT USED FOR UNKNOWN INDICATION
     Dosage: 12 GTT, BID
     Route: 055
  3. LENDACIN [Suspect]
     Active Substance: CEFTRIAXONE SODIUM
     Indication: ATELECTASIS
  4. AMBROXOL [Concomitant]
     Active Substance: AMBROXOL
     Indication: PRODUCT USED FOR UNKNOWN INDICATION
     Dosage: 1 ML, TID
     Route: 048
  5. LENDACIN [Suspect]
     Active Substance: CEFTRIAXONE SODIUM
     Indication: PRIMARY CILIARY DYSKINESIA
     Dosage: 1000 MG DISSOLVED IN 10 ML 0.9% SODIUM CHLORIDE SOLUTION, QD
     Route: 042
     Dates: start: 20181212
  6. LENDACIN [Suspect]
     Active Substance: CEFTRIAXONE SODIUM
     Indication: SINUSITIS

REACTIONS (19)
  - Loss of consciousness [Fatal]
  - Cyanosis [Unknown]
  - Ventricular fibrillation [Unknown]
  - Vasospasm [Unknown]
  - Crying [Unknown]
  - Myocardial fibrosis [Fatal]
  - Pulmonary hypertension [Fatal]
  - Pneumonitis [Fatal]
  - Respiratory depression [Fatal]
  - Sinus bradycardia [Unknown]
  - Acidosis [Unknown]
  - Hypocalcaemia [Unknown]
  - Circulatory collapse [Fatal]
  - Urinary incontinence [Fatal]
  - Apnoea [Fatal]
  - Ventricular tachycardia [Unknown]
  - Pneumothorax [Fatal]
  - Hypoxia [Fatal]
  - Oropharyngeal pain [Fatal]

NARRATIVE: CASE EVENT DATE: 20181212
